FAERS Safety Report 7337248-2 (Version None)
Quarter: 2011Q1

REPORT INFORMATION
  Report Type: 
  Country: None (occurrence: None)
  Receive Date: 20110224
  Receipt Date: 20110210
  Transmission Date: 20110831
  Serious: Yes (Other)
  Sender: FDA-Public Use
  Company Number: AE 2011-053

PATIENT
  Sex: Female
  Weight: 86.1834 kg

DRUGS (3)
  1. ZOLOFT [Concomitant]
  2. PRIALT [Suspect]
     Indication: COMPLEX REGIONAL PAIN SYNDROME
     Dosage: INTRATHECAL
     Route: 037
     Dates: start: 20110104
  3. DILAUDID [Concomitant]

REACTIONS (4)
  - SWELLING [None]
  - OEDEMA [None]
  - RENAL PAIN [None]
  - BLADDER DISORDER [None]
